FAERS Safety Report 21227367 (Version 10)
Quarter: 2023Q4

REPORT INFORMATION
  Report Type: Other
  Country: CA (occurrence: None)
  Receive Date: 20220818
  Receipt Date: 20231005
  Transmission Date: 20240109
  Serious: No
  Sender: FDA-Public Use
  Company Number: CA-ROCHE-3163453

PATIENT
  Age: 36 Year
  Sex: Female

DRUGS (18)
  1. OCREVUS [Suspect]
     Active Substance: OCRELIZUMAB
     Indication: Relapsing-remitting multiple sclerosis
     Dosage: 300 MG AT DAY 0 AND 14, THEN 600 MG EVERY 6 MONTH
     Route: 042
     Dates: start: 20190731
  2. PAXLOVID [Suspect]
     Active Substance: NIRMATRELVIR\RITONAVIR
     Indication: Product used for unknown indication
     Dosage: TAKE 2 PINK TABLETS PINK WITH 1 WHITE TABLET AT THE SAME TIME 2 TIMES PER DAY (MORNING AND NIGHT) FO
     Route: 048
  3. BILASTINE [Concomitant]
     Active Substance: BILASTINE
  4. DYMISTA [Concomitant]
     Active Substance: AZELASTINE HYDROCHLORIDE\FLUTICASONE PROPIONATE
  5. SINGULAIR [Concomitant]
     Active Substance: MONTELUKAST SODIUM
  6. FLUTICASONE [Concomitant]
     Active Substance: FLUTICASONE
     Dosage: ONE VAPORISATION IN EACH NOSTRAL 2 TIMES PER DAY
     Route: 045
  7. VENTOLIN [Concomitant]
     Active Substance: ALBUTEROL SULFATE
     Dosage: PUFFER
  8. MONTELUKAST [Concomitant]
     Active Substance: MONTELUKAST SODIUM
     Route: 048
  9. CORTISONE [Concomitant]
     Active Substance: CORTISONE
  10. PANTOPRAZOLE [Concomitant]
     Active Substance: PANTOPRAZOLE
     Dosage: 30 MINUTES BEFORE BREAKFAST
     Route: 048
  11. LOTEPREDNOL [Concomitant]
     Active Substance: LOTEPREDNOL
     Dosage: INSTILL 1?DROP 4 TIMES PER DAY IN EACH EYE
     Route: 047
  12. OLOPATADINE [Concomitant]
     Active Substance: OLOPATADINE
     Dosage: INSTILL 1 DROP 1 TIME PER DAY IN THE MORNING IN EACH EYE
     Route: 047
  13. BILASTINE [Concomitant]
     Active Substance: BILASTINE
     Route: 048
  14. ALBUTEROL [Concomitant]
     Active Substance: ALBUTEROL
     Dosage: TAKE 2 INHALATIONS 4 TIMES PER DAY IF NEEDED
     Route: 055
  15. VITAMIN D3 [Concomitant]
     Active Substance: CHOLECALCIFEROL
     Route: 048
  16. ETHINYL ESTRADIOL\NORETHINDRONE [Concomitant]
     Active Substance: ETHINYL ESTRADIOL\NORETHINDRONE
     Dosage: 10 MCG+1 MG 1 TABLET PER DAY WITHOUT STOPPING
  17. METRONIDAZOLE [Concomitant]
     Active Substance: METRONIDAZOLE
     Dosage: ONE LOCAL APPLICATION ON LESIONS 2 TIMES PER DAY MORNING AND NIGHT
     Route: 061
  18. PINAVERIUM BROMIDE [Concomitant]
     Active Substance: PINAVERIUM BROMIDE
     Dosage: TABLET 3 TIMES PER DAY WHILE EATING, WITH FOOD

REACTIONS (11)
  - COVID-19 [Recovered/Resolved]
  - Seasonal allergy [Recovering/Resolving]
  - COVID-19 [Unknown]
  - Conjunctivitis [Not Recovered/Not Resolved]
  - Irritable bowel syndrome [Not Recovered/Not Resolved]
  - Gastrooesophageal reflux disease [Not Recovered/Not Resolved]
  - Rhinitis [Not Recovered/Not Resolved]
  - Asthma [Not Recovered/Not Resolved]
  - Rosacea [Not Recovered/Not Resolved]
  - Exophthalmos [Not Recovered/Not Resolved]
  - Cold sweat [Unknown]

NARRATIVE: CASE EVENT DATE: 20220608
